FAERS Safety Report 23310133 (Version 2)
Quarter: 2023Q4

REPORT INFORMATION
  Report Type: Spontaneous
  Country: US (occurrence: US)
  Receive Date: 20231218
  Receipt Date: 20231228
  Transmission Date: 20240110
  Serious: Yes (Death)
  Sender: FDA-Public Use
  Company Number: US-TAIHOP-2023-010813

PATIENT
  Age: 45 Year
  Sex: Male

DRUGS (2)
  1. LONSURF [Suspect]
     Active Substance: TIPIRACIL HYDROCHLORIDE\TRIFLURIDINE
     Indication: Rectal cancer
     Dosage: CYCLE UNKNOWN
     Route: 048
     Dates: start: 202307, end: 20231017
  2. STIVARGA [Concomitant]
     Active Substance: REGORAFENIB
     Indication: Product used for unknown indication
     Dosage: 4X21

REACTIONS (1)
  - Disease progression [Fatal]
